FAERS Safety Report 6719619-8 (Version None)
Quarter: 2010Q2

REPORT INFORMATION
  Report Type: 
  Country: None (occurrence: None)
  Receive Date: 20100507
  Receipt Date: 20100428
  Transmission Date: 20101027
  Serious: Yes (Other)
  Sender: FDA-Public Use
  Company Number: 1000013416

PATIENT
  Age: 83 Year
  Sex: Female

DRUGS (6)
  1. MEMANTINE HCL [Suspect]
     Indication: DEMENTIA ALZHEIMER'S TYPE
     Dosage: 10 MG ORAL
     Route: 048
     Dates: start: 20081104, end: 20081113
  2. METOPROLOL SUCCINATE [Concomitant]
  3. ACETYLSALICYLIC ACID SRT [Concomitant]
  4. GALANTAMINE (TABLETS) [Concomitant]
  5. QUETIAPINE (TABLETS) [Concomitant]
  6. TRAZODONE HCL [Concomitant]

REACTIONS (4)
  - APATHY [None]
  - COMMUNICATION DISORDER [None]
  - SOCIAL PROBLEM [None]
  - TONGUE SPASM [None]
